FAERS Safety Report 19823597 (Version 5)
Quarter: 2022Q1

REPORT INFORMATION
  Report Type: Report from Study
  Country: US (occurrence: US)
  Receive Date: 20210913
  Receipt Date: 20220121
  Transmission Date: 20220424
  Serious: No
  Sender: FDA-Public Use
  Company Number: NVSC2021US205191

PATIENT
  Sex: Male

DRUGS (3)
  1. ENTRESTO [Suspect]
     Active Substance: SACUBITRIL\VALSARTAN
     Indication: Product used for unknown indication
     Dosage: 1 DF, BID (41/59 MG)
     Route: 048
     Dates: start: 20210903
  2. ENTRESTO [Suspect]
     Active Substance: SACUBITRIL\VALSARTAN
     Dosage: 200 MG, BID ((97/103 MG))
     Route: 048
     Dates: start: 20210903
  3. LISINOPRIL [Suspect]
     Active Substance: LISINOPRIL
     Indication: Product used for unknown indication
     Route: 065

REACTIONS (9)
  - Weight decreased [Unknown]
  - Hypoacusis [Recovering/Resolving]
  - Polydipsia [Unknown]
  - Dehydration [Unknown]
  - Blood pressure abnormal [Recovered/Resolved]
  - Rhinorrhoea [Unknown]
  - Nasopharyngitis [Unknown]
  - Therapeutic product effect delayed [Unknown]
  - Cough [Unknown]
